FAERS Safety Report 7522908-0 (Version None)
Quarter: 2011Q2

REPORT INFORMATION
  Report Type: 
  Country: None (occurrence: None)
  Receive Date: 20110603
  Receipt Date: 20110520
  Transmission Date: 20111010
  Serious: Yes (Life-Threatening, Other)
  Sender: FDA-Public Use
  Company Number: PHHY2011CR43602

PATIENT
  Sex: Female

DRUGS (1)
  1. ZOLEDRONIC ACID [Suspect]
     Dosage: 5 MG, UNK
     Route: 042

REACTIONS (7)
  - INCORRECT DRUG ADMINISTRATION DURATION [None]
  - GENERAL PHYSICAL HEALTH DETERIORATION [None]
  - CARDIAC FIBRILLATION [None]
  - VOMITING [None]
  - DIZZINESS [None]
  - FEELING ABNORMAL [None]
  - PAIN [None]
